FAERS Safety Report 8309828-9 (Version None)
Quarter: 2012Q2

REPORT INFORMATION
  Report Type: 
  Country: None (occurrence: None)
  Receive Date: 20120425
  Receipt Date: 20120418
  Transmission Date: 20120825
  Serious: Yes (Other)
  Sender: FDA-Public Use
  Company Number: US-TEVA-334225USA

PATIENT
  Sex: Female

DRUGS (1)
  1. TRAMADOL HCL [Suspect]
     Indication: PAIN
     Dosage: 2-3 TIMES PER DAY

REACTIONS (4)
  - RETINOPATHY [None]
  - OPTIC NEURITIS [None]
  - BLINDNESS UNILATERAL [None]
  - AUTOIMMUNE DISORDER [None]
